FAERS Safety Report 19628257 (Version 1)
Quarter: 2021Q3

REPORT INFORMATION
  Report Type: Spontaneous
  Country: US (occurrence: US)
  Receive Date: 20210728
  Receipt Date: 20210728
  Transmission Date: 20211014
  Serious: No
  Sender: FDA-Public Use
  Company Number: US-TAKEDA-2021TUS046197

PATIENT
  Sex: Female
  Weight: 81 kg

DRUGS (5)
  1. ALLERGY [Concomitant]
     Active Substance: UNSPECIFIED INGREDIENT
  2. POTASSIUM [Concomitant]
     Active Substance: POTASSIUM
  3. VYVANSE [Suspect]
     Active Substance: LISDEXAMFETAMINE DIMESYLATE
     Dosage: 40 MILLIGRAM
     Route: 065
  4. VYVANSE [Suspect]
     Active Substance: LISDEXAMFETAMINE DIMESYLATE
     Indication: ATTENTION DEFICIT HYPERACTIVITY DISORDER
     Dosage: 20 MILLIGRAM
     Route: 065
  5. WATER. [Concomitant]
     Active Substance: WATER

REACTIONS (5)
  - Mental disorder [Unknown]
  - Bruxism [Unknown]
  - Tongue disorder [Unknown]
  - Dry mouth [Unknown]
  - Tooth disorder [Unknown]
